FAERS Safety Report 18359441 (Version 1)
Quarter: 2020Q4

REPORT INFORMATION
  Report Type: Spontaneous
  Country: US (occurrence: US)
  Receive Date: 20201008
  Receipt Date: 20201008
  Transmission Date: 20210114
  Serious: Yes (Disabling)
  Sender: FDA-Public Use
  Company Number: None

PATIENT
  Age: 42 Year
  Sex: Female

DRUGS (3)
  1. GABAPENTIN. [Suspect]
     Active Substance: GABAPENTIN
     Indication: HEADACHE
     Dates: start: 20200101, end: 20200902
  2. APAP [Concomitant]
     Active Substance: ACETAMINOPHEN
  3. GABAPENTIN. [Suspect]
     Active Substance: GABAPENTIN
     Indication: MIGRAINE
     Dates: start: 20200101, end: 20200902

REACTIONS (2)
  - Musculoskeletal disorder [None]
  - Surgery [None]

NARRATIVE: CASE EVENT DATE: 20200906
